FAERS Safety Report 4922049-2 (Version None)
Quarter: 2006Q1

REPORT INFORMATION
  Report Type: 
  Country: None (occurrence: None)
  Receive Date: 20060221
  Receipt Date: 20050509
  Transmission Date: 20060701
  Serious: Yes (Hospitalization)
  Sender: FDA-Public Use
  Company Number: 0505-200

PATIENT
  Age: 12 Year
  Sex: Female
  Weight: 38.5557 kg

DRUGS (2)
  1. IPRATROPIUM BROMIDE [Suspect]
     Indication: ASTHMA
     Dosage: ONE AMPULE AS NEEDED
     Dates: start: 20030101, end: 20050401
  2. ALBUTEROL [Concomitant]

REACTIONS (2)
  - ASTHMA [None]
  - PHARMACEUTICAL PRODUCT COMPLAINT [None]
